FAERS Safety Report 20610166 (Version 1)
Quarter: 2022Q1

REPORT INFORMATION
  Report Type: Spontaneous
  Country: DE (occurrence: DE)
  Receive Date: 20220318
  Receipt Date: 20220318
  Transmission Date: 20220423
  Serious: Yes (Other)
  Sender: FDA-Public Use
  Company Number: DE-PHARMING-PHADE2022000143

PATIENT

DRUGS (1)
  1. RUCONEST [Suspect]
     Active Substance: HUMAN C1-ESTERASE INHIBITOR
     Indication: Product used for unknown indication
     Dosage: 2100 IU, PRN
     Route: 058
     Dates: start: 201905

REACTIONS (3)
  - Cataract [Unknown]
  - Abdominal discomfort [Unknown]
  - Incorrect route of product administration [Unknown]
